FAERS Safety Report 10245018 (Version 1)
Quarter: 2014Q2

REPORT INFORMATION
  Report Type: Spontaneous
  Country: GB (occurrence: None)
  Receive Date: 20140616
  Receipt Date: 20140616
  Transmission Date: 20141212
  Serious: Yes (Other)
  Sender: FDA-Public Use
  Company Number: AUR-APL-2014-06303

PATIENT
  Age: 2 Year
  Sex: Female
  Weight: 11.6 kg

DRUGS (6)
  1. AMOXICILLIN (AMOXICILLIN) [Suspect]
     Indication: PRODUCT USED FOR UNKNOWN INDICATION
     Dates: start: 20140516
  2. BETAMETHASONE VALERATE (BETAMETHASONE VALERATE) [Concomitant]
  3. DIPROBASE /01132701/ (CETOMACROGOL, CETOSTEARYL ALCOHOL, PARAFFIN, LIQUID, WITHE SOFT PARAFFIN) [Concomitant]
  4. ERYTHROMYCIN ETHYLSUCCINATE (ERYTHROMYCIN ETHYLSUCCINATE) [Concomitant]
  5. IBUPROFEN (IBUPROFEN) [Concomitant]
  6. PHENOXYMETHYLPENICILLIN (PHENOXYMETHYLPENICILLIN) [Concomitant]

REACTIONS (2)
  - Rash [None]
  - Malaise [None]
